FAERS Safety Report 14913132 (Version 1)
Quarter: 2018Q2

REPORT INFORMATION
  Report Type: Spontaneous
  Country: US (occurrence: US)
  Receive Date: 20180501
  Receipt Date: 20180501
  Transmission Date: 20180711
  Serious: Yes (Other)
  Sender: FDA-Public Use
  Company Number: None

PATIENT
  Age: 71 Year
  Sex: Female
  Weight: 71 kg

DRUGS (5)
  1. CHOLECALCIFEROL 5000 UNITS [Concomitant]
  2. NIVOLUMAB [Suspect]
     Active Substance: NIVOLUMAB
     Indication: RENAL CELL CARCINOMA
     Dosage: ?          OTHER FREQUENCY:EVERY 14 DAYS;?
     Route: 042
     Dates: start: 20171020, end: 20171229
  3. AMLODIPINE 2.5 MG [Concomitant]
     Active Substance: AMLODIPINE BESYLATE
  4. CETIRIZINE [Concomitant]
     Active Substance: CETIRIZINE HYDROCHLORIDE
  5. IBANDRONATE 150 MG [Concomitant]

REACTIONS (1)
  - Squamous cell carcinoma of skin [None]

NARRATIVE: CASE EVENT DATE: 20180103
